FAERS Safety Report 25997841 (Version 3)
Quarter: 2025Q4

REPORT INFORMATION
  Report Type: Spontaneous
  Country: GB (occurrence: GB)
  Receive Date: 20251105
  Receipt Date: 20251120
  Transmission Date: 20260118
  Serious: Yes (Hospitalization)
  Sender: ALEXION PHARMACEUTICALS
  Company Number: UA-ASTRAZENECA-202510GLO031596UA

PATIENT
  Age: 72 Year
  Sex: Male

DRUGS (4)
  1. DURVALUMAB [Suspect]
     Active Substance: DURVALUMAB
     Dosage: 1500 MILLIGRAM, DAY 1 OF CYCLE
  2. TREMELIMUMAB [Suspect]
     Active Substance: TREMELIMUMAB
     Dosage: 75 MILLIGRAM, DAY 1 OF CYCLE
  3. CISPLATIN [Suspect]
     Active Substance: CISPLATIN
     Dosage: 113 MILLIGRAM,  DAY 1 OF CYCLE
  4. GEMCITABINE [Suspect]
     Active Substance: GEMCITABINE
     Dosage: 1710 MILLIGRAM,  DAY 1 AND 8 OF CYCLE

REACTIONS (7)
  - Pyrexia [Not Recovered/Not Resolved]
  - Urine odour abnormal [Unknown]
  - Fatigue [Unknown]
  - Streptococcus test positive [Unknown]
  - Oedema peripheral [Unknown]
  - Escherichia test positive [Unknown]
  - Culture urine positive [Unknown]

NARRATIVE: CASE EVENT DATE: 20251027
